FAERS Safety Report 6354054-6 (Version None)
Quarter: 2009Q3

REPORT INFORMATION
  Report Type: 
  Country: None (occurrence: None)
  Receive Date: 20090914
  Receipt Date: 20090908
  Transmission Date: 20100115
  Serious: Yes (Other)
  Sender: FDA-Public Use
  Company Number: US-JNJFOC-20090903296

PATIENT
  Sex: Female
  Weight: 113.4 kg

DRUGS (17)
  1. LEVAQUIN [Suspect]
     Route: 065
     Dates: start: 20080101, end: 20090401
  2. LEVAQUIN [Suspect]
     Indication: URINARY TRACT INFECTION
     Route: 065
     Dates: start: 20080101, end: 20090401
  3. LEVAQUIN [Suspect]
     Route: 042
  4. ALLOPURINOL [Concomitant]
     Indication: GOUT
     Route: 065
  5. CELEBREX [Concomitant]
     Indication: BACK PAIN
     Route: 065
  6. COUMADIN [Concomitant]
     Indication: THROMBOSIS
     Route: 065
  7. DIGOXIN [Concomitant]
     Indication: CARDIAC DISORDER
     Route: 065
  8. IRON [Concomitant]
     Indication: VITAMIN SUPPLEMENTATION
     Route: 065
  9. LANTUS [Concomitant]
     Indication: DIABETES MELLITUS
     Route: 065
  10. NOVOLOG [Concomitant]
     Indication: BLOOD INSULIN
     Route: 065
  11. LASIX [Concomitant]
     Indication: FLUID RETENTION
     Route: 065
  12. LIPITOR [Concomitant]
     Indication: BLOOD CHOLESTEROL
     Route: 065
  13. PRILOSEC [Concomitant]
     Indication: DYSPEPSIA
     Route: 065
  14. TOPROL-XL [Concomitant]
     Indication: BLOOD PRESSURE
     Route: 065
  15. ASPIRIN [Concomitant]
     Route: 065
  16. VICODIN [Concomitant]
     Indication: PAIN IN EXTREMITY
     Route: 065
  17. CALCIUM [Concomitant]
     Indication: VITAMIN SUPPLEMENTATION
     Route: 065

REACTIONS (2)
  - ARTHRALGIA [None]
  - JOINT INJURY [None]
